FAERS Safety Report 16090473 (Version 1)
Quarter: 2019Q1

REPORT INFORMATION
  Report Type: Spontaneous
  Country: US (occurrence: US)
  Receive Date: 20190319
  Receipt Date: 20190319
  Transmission Date: 20190418
  Serious: No
  Sender: FDA-Public Use
  Company Number: US-TARO-2019TAR00136

PATIENT
  Sex: Female

DRUGS (1)
  1. METRONIDAZOLE GEL USP, 1% [Suspect]
     Active Substance: METRONIDAZOLE
     Route: 061

REACTIONS (6)
  - Product quality issue [Unknown]
  - Application site pain [Unknown]
  - Application site pruritus [Unknown]
  - Drug ineffective [Unknown]
  - Product substitution issue [Unknown]
  - Discomfort [Unknown]
